FAERS Safety Report 17488363 (Version 1)
Quarter: 2020Q1

REPORT INFORMATION
  Report Type: Spontaneous
  Country: US (occurrence: US)
  Receive Date: 20200302
  Receipt Date: 20200302
  Transmission Date: 20200409
  Serious: Yes (Hospitalization)
  Sender: FDA-Public Use
  Company Number: None

PATIENT
  Sex: Female

DRUGS (8)
  1. BOTOX [Suspect]
     Active Substance: ONABOTULINUMTOXINA
     Indication: MIGRAINE
     Dosage: ?          OTHER FREQUENCY:ONCE;?
     Route: 030
     Dates: start: 20190730
  2. AMTRIPTYLIN [Concomitant]
  3. CLINDAMY/BEN [Concomitant]
  4. TROKENDI XR [Concomitant]
     Active Substance: TOPIRAMATE
  5. DULOXETINE. [Concomitant]
     Active Substance: DULOXETINE
  6. BACLOFEN. [Concomitant]
     Active Substance: BACLOFEN
  7. EMGALITY [Concomitant]
     Active Substance: GALCANEZUMAB-GNLM
  8. NORETHIN ACE [Concomitant]

REACTIONS (2)
  - Therapy cessation [None]
  - Migraine [None]
